FAERS Safety Report 6555138-X (Version None)
Quarter: 2010Q1

REPORT INFORMATION
  Report Type: 
  Country: None (occurrence: None)
  Receive Date: 20100126
  Receipt Date: 20100126
  Transmission Date: 20100710
  Serious: No
  Sender: FDA-Public Use
  Company Number: None

PATIENT
  Age: 74 Year
  Sex: Female
  Weight: 50 kg

DRUGS (1)
  1. CYMBALTA [Suspect]
     Indication: FIBROMYALGIA
     Dosage: 30 MGM ONE CAPSULE ONLY ONLY TOOK ONE PO
     Route: 048
     Dates: start: 20100113

REACTIONS (4)
  - ANGLE CLOSURE GLAUCOMA [None]
  - MYDRIASIS [None]
  - PUPIL FIXED [None]
  - VISION BLURRED [None]
